FAERS Safety Report 13634134 (Version 1)
Quarter: 2017Q2

REPORT INFORMATION
  Report Type: Spontaneous
  Country: BR (occurrence: BR)
  Receive Date: 20170609
  Receipt Date: 20170609
  Transmission Date: 20170830
  Serious: Yes (Hospitalization, Other)
  Sender: FDA-Public Use
  Company Number: BR-SHIRE-BR201712734

PATIENT
  Age: 18 Year
  Sex: Male
  Weight: 54 kg

DRUGS (9)
  1. MESACOL MMX [Suspect]
     Active Substance: MESALAMINE
     Dosage: 1600 MG, 1X/DAY:QD
     Route: 048
     Dates: start: 201705, end: 201705
  2. IMURAN [Concomitant]
     Active Substance: AZATHIOPRINE
     Indication: PRODUCT USED FOR UNKNOWN INDICATION
     Dosage: 50 MG, 1X/DAY:QD
     Route: 065
     Dates: start: 2017
  3. DOMPERIDONE [Concomitant]
     Active Substance: DOMPERIDONE
     Indication: PRODUCT USED FOR UNKNOWN INDICATION
     Dosage: 30 MG, 1X/DAY:QD
     Route: 065
  4. MESACOL MMX [Suspect]
     Active Substance: MESALAMINE
     Indication: COLITIS ULCERATIVE
     Dosage: 2 DF, 1X/DAY:QD
     Route: 048
     Dates: start: 2015, end: 20170604
  5. TECTA [Suspect]
     Active Substance: PANTOPRAZOLE MAGNESIUM
     Indication: OESOPHAGITIS
  6. MESACOL MMX [Suspect]
     Active Substance: MESALAMINE
     Dosage: UNK
  7. PREDNISONE. [Suspect]
     Active Substance: PREDNISONE
     Dosage: UNK, AS REQ^D
     Route: 065
  8. PREDNISONE. [Suspect]
     Active Substance: PREDNISONE
     Indication: COLITIS ULCERATIVE
     Dosage: 20 MG, 1X/DAY:QD
     Route: 048
     Dates: start: 201705, end: 201705
  9. TECTA [Suspect]
     Active Substance: PANTOPRAZOLE MAGNESIUM
     Indication: GASTROOESOPHAGEAL REFLUX DISEASE
     Dosage: 40 MG, 1X/DAY:QD
     Route: 048
     Dates: start: 2014, end: 20170604

REACTIONS (6)
  - Mucous stools [Not Recovered/Not Resolved]
  - Colitis ulcerative [Not Recovered/Not Resolved]
  - Haematochezia [Not Recovered/Not Resolved]
  - Medication residue present [Unknown]
  - Abdominal pain [Recovered/Resolved]
  - Drug ineffective [Recovered/Resolved]

NARRATIVE: CASE EVENT DATE: 201703
